FAERS Safety Report 15536938 (Version 1)
Quarter: 2018Q4

REPORT INFORMATION
  Report Type: Spontaneous
  Country: US (occurrence: US)
  Receive Date: 20181022
  Receipt Date: 20181022
  Transmission Date: 20190205
  Serious: Yes (Death, Other)
  Sender: FDA-Public Use
  Company Number: US-PFIZER INC-2018428015

PATIENT
  Age: 67 Year
  Sex: Male

DRUGS (2)
  1. MEPRON [Suspect]
     Active Substance: ATOVAQUONE
     Dosage: 10 MG, DAILY
     Route: 048
  2. VFEND [Suspect]
     Active Substance: VORICONAZOLE
     Indication: ACUTE MYELOID LEUKAEMIA
     Dosage: 1000 MG, DAILY, (3 TABLETS BY MOUTH IN THE MORNING AND 2 TABLETS AT NIGHT)
     Route: 048

REACTIONS (2)
  - Respiratory failure [Fatal]
  - Weight decreased [Unknown]
